FAERS Safety Report 12544754 (Version 1)
Quarter: 2016Q3

REPORT INFORMATION
  Report Type: Spontaneous
  Country: DE (occurrence: DE)
  Receive Date: 20160711
  Receipt Date: 20160711
  Transmission Date: 20161109
  Serious: Yes (Life-Threatening, Disabling)
  Sender: FDA-Public Use
  Company Number: DE-AUROBINDO-AUR-APL-2016-08568

PATIENT
  Age: 77 Year
  Sex: Female

DRUGS (1)
  1. TAMSULOSIN [Suspect]
     Active Substance: TAMSULOSIN
     Indication: BREAST CANCER FEMALE
     Dosage: UNK
     Route: 048
     Dates: start: 20130909

REACTIONS (2)
  - Thrombocytopenia [Not Recovered/Not Resolved]
  - Erythropenia [Not Recovered/Not Resolved]

NARRATIVE: CASE EVENT DATE: 20151006
